FAERS Safety Report 5075614-9 (Version None)
Quarter: 2006Q3

REPORT INFORMATION
  Report Type: 
  Country: None (occurrence: None)
  Receive Date: 20060809
  Receipt Date: 20060801
  Transmission Date: 20061208
  Serious: Yes (Other)
  Sender: FDA-Public Use
  Company Number: 2006UW15409

PATIENT
  Age: 54 Year
  Sex: Female
  Weight: 81.6 kg

DRUGS (4)
  1. ARIMIDEX [Suspect]
     Indication: BREAST CANCER
     Route: 048
     Dates: start: 20060601
  2. COUMADIN [Concomitant]
  3. LUPRON [Concomitant]
  4. SINGULAIR [Concomitant]

REACTIONS (2)
  - SWELLING FACE [None]
  - THROMBOSIS [None]
